FAERS Safety Report 9953689 (Version 2)
Quarter: 2014Q2

REPORT INFORMATION
  Report Type: Report from Study
  Country: BR (occurrence: BR)
  Receive Date: 20140304
  Receipt Date: 20140510
  Transmission Date: 20141212
  Serious: Yes (Other)
  Sender: FDA-Public Use
  Company Number: PHHY2014BR025571

PATIENT
  Sex: Female
  Weight: 47 kg

DRUGS (3)
  1. ACLASTA [Suspect]
     Indication: OSTEOPOROSIS
     Dosage: 5 MG, EVERY YEAR
     Route: 042
     Dates: start: 201302
  2. CALCIUM +D                         /00944201/ [Concomitant]
     Indication: BONE DISORDER
     Dosage: 75 MG, DAILY
     Route: 048
     Dates: start: 2012
  3. CHOLECALCIFEROL [Concomitant]
     Indication: BONE DISORDER
     Dosage: 15 MG, DAILY
     Route: 048
     Dates: start: 2012

REACTIONS (1)
  - Visual acuity reduced [Unknown]
